FAERS Safety Report 10446203 (Version 1)
Quarter: 2014Q3

REPORT INFORMATION
  Report Type: Spontaneous
  Country: BR (occurrence: BR)
  Receive Date: 20140911
  Receipt Date: 20140911
  Transmission Date: 20150326
  Serious: Yes (Death, Hospitalization, Other)
  Sender: FDA-Public Use
  Company Number: PHHY2014BR111567

PATIENT
  Age: 45 Year
  Sex: Male

DRUGS (1)
  1. SIMVASTATIN. [Suspect]
     Active Substance: SIMVASTATIN

REACTIONS (7)
  - Blood pressure abnormal [Unknown]
  - Swelling [Unknown]
  - Pneumonia [Unknown]
  - Death [Fatal]
  - Coma [Unknown]
  - Malaise [Unknown]
  - Fall [Unknown]

NARRATIVE: CASE EVENT DATE: 20140805
